FAERS Safety Report 8265904-0 (Version None)
Quarter: 2012Q2

REPORT INFORMATION
  Report Type: 
  Country: None (occurrence: None)
  Receive Date: 20120403
  Receipt Date: 20120321
  Transmission Date: 20120825
  Serious: Yes (Other)
  Sender: FDA-Public Use
  Company Number: 2012-00543

PATIENT
  Age: 47 Year
  Sex: Female
  Weight: 81 kg

DRUGS (3)
  1. AMLODIPINE [Concomitant]
  2. LOSARTAN POTASSIUM [Suspect]
     Indication: PRODUCT USED FOR UNKNOWN INDICATION
     Dosage: UNKNOWN
     Dates: start: 20120131
  3. RAMIPRIL [Concomitant]

REACTIONS (2)
  - OROPHARYNGEAL PAIN [None]
  - DYSPNOEA [None]
